FAERS Safety Report 20734332 (Version 2)
Quarter: 2022Q2

REPORT INFORMATION
  Report Type: Report from Study
  Country: US (occurrence: US)
  Receive Date: 20220421
  Receipt Date: 20220425
  Transmission Date: 20220721
  Serious: Yes (Death, Other)
  Sender: FDA-Public Use
  Company Number: US-MYLANLABS-2022M1028639

PATIENT
  Age: 72 Year
  Sex: Female

DRUGS (13)
  1. TACROLIMUS [Suspect]
     Active Substance: TACROLIMUS
     Indication: Immunosuppressant drug therapy
     Dosage: UNK
     Route: 065
     Dates: start: 201109
  2. MYCOPHENOLATE MOFETIL [Suspect]
     Active Substance: MYCOPHENOLATE MOFETIL
     Indication: Immunosuppressant drug therapy
     Dosage: UNK
     Route: 065
     Dates: start: 201109
  3. PREDNISOLONE [Suspect]
     Active Substance: PREDNISOLONE
     Indication: Post transplant lymphoproliferative disorder
     Dosage: UNK UNK, CYCLE (THE PATIENT RECEIVED ONE CYCLE OF R-CHOP REGIMEN)
     Route: 065
  4. PREDNISOLONE [Suspect]
     Active Substance: PREDNISOLONE
     Indication: Immunosuppressant drug therapy
  5. DOXORUBICIN [Suspect]
     Active Substance: DOXORUBICIN
     Indication: Post transplant lymphoproliferative disorder
     Dosage: UNK, CYCLE (THE PATIENT RECEIVED ONE CYCLE OF R-CHOP REGIMEN)
     Route: 065
  6. DOXORUBICIN [Suspect]
     Active Substance: DOXORUBICIN
     Indication: Immunosuppressant drug therapy
  7. RITUXIMAB [Suspect]
     Active Substance: RITUXIMAB
     Indication: Post transplant lymphoproliferative disorder
     Dosage: UNK UNK, CYCLE (THE PATIENT RECEIVED ONE CYCLE OF R-CHOP THERAPY)
     Route: 065
  8. RITUXIMAB [Suspect]
     Active Substance: RITUXIMAB
     Indication: Immunosuppressant drug therapy
  9. CYCLOPHOSPHAMIDE [Suspect]
     Active Substance: CYCLOPHOSPHAMIDE
     Indication: Post transplant lymphoproliferative disorder
     Dosage: UNK, CYCLE; THE PATIENT RECEIVED ONE CYCLE OF R-CHOP REGIMEN
     Route: 065
  10. CYCLOPHOSPHAMIDE [Suspect]
     Active Substance: CYCLOPHOSPHAMIDE
     Indication: Immunosuppressant drug therapy
  11. VINCRISTINE [Suspect]
     Active Substance: VINCRISTINE
     Indication: Post transplant lymphoproliferative disorder
     Dosage: UNK UNK, CYCLE (THE PATIENT RECEIVED ONE CYCLE OF R-CHOP REGIMEN)
     Route: 065
  12. VINCRISTINE [Suspect]
     Active Substance: VINCRISTINE
     Indication: Immunosuppressant drug therapy
  13. LAPINE T-LYMPHOCYTE IMMUNE GLOBULIN [Suspect]
     Active Substance: LAPINE T-LYMPHOCYTE IMMUNE GLOBULIN
     Indication: Immunosuppressant drug therapy
     Dosage: UNK
     Route: 065
     Dates: start: 201109

REACTIONS (3)
  - Toxicity to various agents [Fatal]
  - Post transplant lymphoproliferative disorder [Unknown]
  - Renal impairment [Unknown]

NARRATIVE: CASE EVENT DATE: 20190901
